FAERS Safety Report 5154017-2 (Version None)
Quarter: 2006Q4

REPORT INFORMATION
  Report Type: 
  Country: None (occurrence: None)
  Receive Date: 20061120
  Receipt Date: 20061110
  Transmission Date: 20070319
  Serious: Yes (Hospitalization)
  Sender: FDA-Public Use
  Company Number: FR-GLAXOSMITHKLINE-B0446088A

PATIENT
  Age: 80 Year
  Sex: Female

DRUGS (2)
  1. LAMICTAL [Suspect]
     Indication: EPILEPSY
     Route: 048
     Dates: start: 20050101
  2. VAXIGRIP [Suspect]
     Route: 030
     Dates: start: 20061019, end: 20061019

REACTIONS (4)
  - EAR HAEMORRHAGE [None]
  - GINGIVAL BLEEDING [None]
  - PURPURA [None]
  - THROMBOCYTOPENIA [None]
